FAERS Safety Report 11813278 (Version 3)
Quarter: 2016Q2

REPORT INFORMATION
  Report Type: Report from Study
  Country: US (occurrence: US)
  Receive Date: 20151209
  Receipt Date: 20160504
  Transmission Date: 20160815
  Serious: Yes (Hospitalization)
  Sender: FDA-Public Use
  Company Number: US-SA-2015SA103073

PATIENT
  Age: 3 Year
  Sex: Male
  Weight: 13.55 kg

DRUGS (2)
  1. CEREZYME [Suspect]
     Active Substance: IMIGLUCERASE
     Indication: GAUCHER^S DISEASE TYPE I
     Dosage: DOSE:60 UNIT(S)/KILOGRAM BODYWEIGHT
     Route: 042
     Dates: start: 20150414, end: 201511
  2. CEREZYME [Suspect]
     Active Substance: IMIGLUCERASE
     Indication: GAUCHER^S DISEASE TYPE I
     Dosage: FREQUENCY: Q2
     Route: 042

REACTIONS (7)
  - Pyrexia [Recovering/Resolving]
  - Pyrexia [Unknown]
  - Psychomotor hyperactivity [Not Recovered/Not Resolved]
  - Insomnia [Recovered/Resolved]
  - Rhinovirus infection [Recovering/Resolving]
  - Viral infection [Unknown]
  - Constipation [Unknown]

NARRATIVE: CASE EVENT DATE: 201511
